FAERS Safety Report 23360071 (Version 1)
Quarter: 2024Q1

REPORT INFORMATION
  Report Type: Spontaneous
  Country: FR (occurrence: FR)
  Receive Date: 20240103
  Receipt Date: 20240103
  Transmission Date: 20240410
  Serious: Yes (Other)
  Sender: FDA-Public Use
  Company Number: FR-AFSSAPS-SE2023001078

PATIENT
  Age: 61 Year
  Sex: Female
  Weight: 58 kg

DRUGS (2)
  1. CEFUROXIME [Suspect]
     Active Substance: CEFUROXIME
     Indication: Antibiotic therapy
     Dosage: 1.5 GRAM, 1 TOTAL
     Route: 042
     Dates: start: 20231204, end: 20231204
  2. CEFUROXIME [Suspect]
     Active Substance: CEFUROXIME
     Dosage: 1.5 GRAM, 1 TOTAL
     Route: 042
     Dates: start: 20231211, end: 20231211

REACTIONS (1)
  - Vascular purpura [Unknown]

NARRATIVE: CASE EVENT DATE: 20231207
